FAERS Safety Report 9779960 (Version 2)
Quarter: 2014Q1

REPORT INFORMATION
  Report Type: Spontaneous
  Country: CH (occurrence: CH)
  Receive Date: 20131223
  Receipt Date: 20140217
  Transmission Date: 20141002
  Serious: Yes (Hospitalization, Other)
  Sender: FDA-Public Use
  Company Number: CH-PFIZER INC-2013363753

PATIENT
  Sex: Male
  Weight: 2.7 kg

DRUGS (5)
  1. XANAX [Suspect]
     Dosage: 6 MG, 1X/DAY
     Route: 064
     Dates: start: 2012
  2. METHADONE [Suspect]
     Dosage: 90 MG, 1X/DAY
     Route: 064
  3. METHADONE [Suspect]
     Dosage: 130 MG, 1X/DAY
     Route: 064
  4. TOPAMAX [Suspect]
     Indication: BIPOLAR DISORDER
     Dosage: 50 MG, 2X/DAY
     Route: 064
     Dates: end: 201305
  5. SEROQUEL [Suspect]
     Indication: BIPOLAR DISORDER
     Dosage: UNK
     Dates: start: 2013, end: 201307

REACTIONS (3)
  - Maternal exposure during pregnancy [Unknown]
  - Drug withdrawal syndrome neonatal [Unknown]
  - Foetal growth restriction [Unknown]
